FAERS Safety Report 7680329-4 (Version None)
Quarter: 2011Q3

REPORT INFORMATION
  Report Type: 
  Country: None (occurrence: None)
  Receive Date: 20110812
  Receipt Date: 20110808
  Transmission Date: 20111222
  Serious: Yes (Hospitalization)
  Sender: FDA-Public Use
  Company Number: US-GLAXOSMITHKLINE-A0940081A

PATIENT
  Age: 81 Year
  Sex: Male

DRUGS (6)
  1. ZOLOFT [Concomitant]
  2. BLOOD PRESSURE MEDICATION [Concomitant]
  3. HYDROCODONE BITARTRATE AND ACETAMINOPHEN [Concomitant]
  4. TRAZODONE HCL [Concomitant]
  5. ADVAIR DISKUS 100/50 [Suspect]
     Indication: CHRONIC OBSTRUCTIVE PULMONARY DISEASE
     Dosage: 1PUFF TWICE PER DAY
     Route: 055
  6. SPIRIVA [Concomitant]

REACTIONS (2)
  - BRONCHITIS CHRONIC [None]
  - LUNG INFECTION [None]
